FAERS Safety Report 8077249-2 (Version None)
Quarter: 2012Q1

REPORT INFORMATION
  Report Type: 
  Country: None (occurrence: None)
  Receive Date: 20120127
  Receipt Date: 20120126
  Transmission Date: 20120608
  Serious: Yes (Life-Threatening)
  Sender: FDA-Public Use
  Company Number: JP-B.I. PHARMACEUTICALS,INC./RIDGEFIELD-2012-BP-00778NB

PATIENT
  Age: 72 Year
  Sex: Female

DRUGS (7)
  1. AMARYL [Concomitant]
     Dosage: NR
     Route: 065
  2. EQUA [Concomitant]
     Dosage: NR
     Route: 065
  3. PRADAXA [Suspect]
     Dosage: 220 MG
     Route: 048
  4. EPLERENONE [Concomitant]
     Dosage: NR
     Route: 065
  5. DIFLUNISAL [Concomitant]
     Dosage: NR
     Route: 065
  6. DOXAZOSIN MESYLATE [Concomitant]
     Dosage: NR
     Route: 065
  7. TORSEMIDE [Concomitant]
     Dosage: NR
     Route: 065

REACTIONS (2)
  - ANAEMIA [None]
  - HYPERKALAEMIA [None]
